FAERS Safety Report 21664262 (Version 1)
Quarter: 2022Q4

REPORT INFORMATION
  Report Type: Spontaneous
  Country: US (occurrence: None)
  Receive Date: 20221130
  Receipt Date: 20221130
  Transmission Date: 20230113
  Serious: Yes (Hospitalization)
  Sender: FDA-Public Use
  Company Number: None

PATIENT
  Age: 81 Year
  Sex: Female
  Weight: 58.4 kg

DRUGS (2)
  1. LEXISCAN [Suspect]
     Active Substance: REGADENOSON
     Indication: Product used for unknown indication
     Dosage: OTHER FREQUENCY : ONCE;?
     Route: 040
     Dates: start: 20221129, end: 20221129
  2. 99m Tc sestamibi, dose 34.1 millicuries I.V. [Concomitant]
     Dates: start: 20221129, end: 20221129

REACTIONS (6)
  - Infusion related reaction [None]
  - Pain in jaw [None]
  - Back pain [None]
  - Neck pain [None]
  - Contrast media reaction [None]
  - Chest pain [None]

NARRATIVE: CASE EVENT DATE: 20221129
